FAERS Safety Report 19429615 (Version 5)
Quarter: 2021Q4

REPORT INFORMATION
  Report Type: Report from Study
  Country: US (occurrence: US)
  Receive Date: 20210617
  Receipt Date: 20211112
  Transmission Date: 20220303
  Serious: Yes (Hospitalization, Other)
  Sender: FDA-Public Use
  Company Number: US-CLOVIS ONCOLOGY-CLO-2021-000711

PATIENT
  Age: 68 Year
  Sex: Female

DRUGS (9)
  1. RUBRACA [Suspect]
     Active Substance: RUCAPARIB CAMSYLATE
     Indication: Ovarian cancer
     Dosage: 300 MILLIGRAM, BID
     Route: 048
     Dates: start: 20210418
  2. RUBRACA [Suspect]
     Active Substance: RUCAPARIB CAMSYLATE
     Dosage: 600 MILLIGRAM, BID
     Route: 048
     Dates: start: 20210426
  3. RUBRACA [Suspect]
     Active Substance: RUCAPARIB CAMSYLATE
     Dosage: 1 DOSE PER DAY X 1 WEEK
  4. RUBRACA [Suspect]
     Active Substance: RUCAPARIB CAMSYLATE
     Dosage: 600 MILLIGRAM, BID
     Route: 048
     Dates: start: 202105
  5. RUBRACA [Suspect]
     Active Substance: RUCAPARIB CAMSYLATE
     Dosage: 500 MILLIGRAM, BID
     Route: 048
     Dates: start: 20210625
  6. RUBRACA [Suspect]
     Active Substance: RUCAPARIB CAMSYLATE
     Dosage: 400 MILLIGRAM, BID
     Route: 048
     Dates: start: 20210727
  7. RUBRACA [Suspect]
     Active Substance: RUCAPARIB CAMSYLATE
     Dosage: 400 MILLIGRAM, BID
     Route: 048
     Dates: start: 20210418, end: 20211020
  8. ZOFRAN [Suspect]
     Active Substance: ONDANSETRON HYDROCHLORIDE
     Indication: Nausea
     Dosage: UNK
     Dates: end: 202107
  9. CYMBALTA [Concomitant]
     Active Substance: DULOXETINE HYDROCHLORIDE
     Indication: Depression

REACTIONS (31)
  - Pancreatitis [Recovering/Resolving]
  - Chest pain [Unknown]
  - Renal impairment [Unknown]
  - Abdominal pain upper [Unknown]
  - Recurrent cancer [Unknown]
  - Somnolence [Not Recovered/Not Resolved]
  - Feeling abnormal [Unknown]
  - Vitamin B12 decreased [Unknown]
  - Dysphagia [Recovered/Resolved]
  - Full blood count abnormal [Not Recovered/Not Resolved]
  - Carbohydrate antigen 125 increased [Unknown]
  - Memory impairment [Unknown]
  - Fall [Unknown]
  - Sleep disorder [Unknown]
  - Contusion [Unknown]
  - Skin discolouration [Unknown]
  - Joint dislocation [Unknown]
  - Impaired healing [Unknown]
  - Hair growth abnormal [Unknown]
  - Tumour marker increased [Unknown]
  - Weight decreased [Unknown]
  - Constipation [Recovered/Resolved]
  - Abdominal distension [Unknown]
  - Fatigue [Recovering/Resolving]
  - Asthenia [Unknown]
  - White blood cell count decreased [Unknown]
  - Red blood cell count decreased [Unknown]
  - Haemoglobin decreased [Unknown]
  - Haematocrit decreased [Unknown]
  - Product label confusion [Unknown]
  - Product dose omission in error [Unknown]

NARRATIVE: CASE EVENT DATE: 20210401
